FAERS Safety Report 22291872 (Version 1)
Quarter: 2023Q2

REPORT INFORMATION
  Report Type: Report from Study
  Country: DE (occurrence: DE)
  Receive Date: 20230507
  Receipt Date: 20230507
  Transmission Date: 20230721
  Serious: Yes (Hospitalization, Other)
  Sender: FDA-Public Use
  Company Number: DE-CELLTRION INC.-2023DE009325

PATIENT

DRUGS (2)
  1. BEVACIZUMAB [Suspect]
     Active Substance: BEVACIZUMAB
     Indication: Hepatocellular carcinoma
     Dosage: 1065 MG, MONTHLY, LINE 1, DATE OF LAST APPLICATION PRIOR EVENT: 11/JAN/2023 (930 MG)
     Dates: start: 20210901, end: 20230111
  2. ATEZOLIZUMAB [Suspect]
     Active Substance: ATEZOLIZUMAB
     Indication: Hepatocellular carcinoma
     Dosage: 1200 MG, MONTHLY, LINE 1, DATE OF LAST APPLICATION PRIOR EVENT: 11/JAN/2023 (1200 MG)
     Dates: start: 20210901, end: 20230111

REACTIONS (2)
  - Pneumonitis [Recovered/Resolved]
  - Intentional product use issue [Unknown]

NARRATIVE: CASE EVENT DATE: 20230330
